FAERS Safety Report 7292649-6 (Version None)
Quarter: 2011Q1

REPORT INFORMATION
  Report Type: 
  Country: None (occurrence: None)
  Receive Date: 20110214
  Receipt Date: 20110214
  Transmission Date: 20110831
  Serious: Yes (Hospitalization, Other)
  Sender: FDA-Public Use
  Company Number: None

PATIENT
  Age: 36 Year
  Sex: Male
  Weight: 46.7205 kg

DRUGS (1)
  1. TRIAD GROUP ALCOHOL PADS PFIZER, INC. [Suspect]

REACTIONS (2)
  - WEIGHT DECREASED [None]
  - INFECTION [None]
